FAERS Safety Report 26074298 (Version 2)
Quarter: 2025Q4

REPORT INFORMATION
  Report Type: Spontaneous
  Country: US (occurrence: US)
  Receive Date: 20251121
  Receipt Date: 20251128
  Transmission Date: 20260118
  Serious: Yes (Other)
  Sender: ALK-ABELLO
  Company Number: US-ALK-ABELLO A/S-2025AA003493

PATIENT

DRUGS (6)
  1. DERMATOPHAGOIDES FARINAE\DERMATOPHAGOIDES PTERONYSSINUS [Suspect]
     Active Substance: DERMATOPHAGOIDES FARINAE\DERMATOPHAGOIDES PTERONYSSINUS
     Indication: Product used for unknown indication
     Dosage: UNK
     Dates: start: 20241026
  2. DERMATOPHAGOIDES FARINAE\DERMATOPHAGOIDES PTERONYSSINUS [Suspect]
     Active Substance: DERMATOPHAGOIDES FARINAE\DERMATOPHAGOIDES PTERONYSSINUS
     Dosage: UNK
     Dates: start: 20241026
  3. SYMBICORT [Concomitant]
     Active Substance: BUDESONIDE\FORMOTEROL FUMARATE DIHYDRATE
  4. LEVOCETIRIZINE [Concomitant]
     Active Substance: LEVOCETIRIZINE
  5. ALBUTEROL [Concomitant]
     Active Substance: ALBUTEROL
  6. ARNUITY ELLIPTA [Concomitant]
     Active Substance: FLUTICASONE FUROATE

REACTIONS (2)
  - Hypersensitivity [Recovered/Resolved]
  - Tracheal stenosis [Unknown]

NARRATIVE: CASE EVENT DATE: 20250801
